FAERS Safety Report 6578555-0 (Version None)
Quarter: 2010Q1

REPORT INFORMATION
  Report Type: 
  Country: None (occurrence: None)
  Receive Date: 20100211
  Receipt Date: 20100203
  Transmission Date: 20100710
  Serious: Yes (Death)
  Sender: FDA-Public Use
  Company Number: US-PFIZER INC-2010014897

PATIENT
  Age: 16 Year
  Sex: Female

DRUGS (3)
  1. ALPRAZOLAM [Suspect]
  2. HYDROCODONE [Suspect]
  3. OXYCODONE [Suspect]

REACTIONS (1)
  - DRUG TOXICITY [None]
